FAERS Safety Report 25981441 (Version 2)
Quarter: 2025Q4

REPORT INFORMATION
  Report Type: Spontaneous
  Country: US (occurrence: US)
  Receive Date: 20251030
  Receipt Date: 20251214
  Transmission Date: 20260118
  Serious: No
  Sender: GLAUKOS
  Company Number: US-GLK-000691

PATIENT
  Age: 70 Year
  Sex: Female

DRUGS (4)
  1. IDOSE TR [Suspect]
     Active Substance: TRAVOPROST
     Indication: Glaucoma
     Dosage: LEFT EYE
     Route: 047
     Dates: start: 20250415, end: 20250415
  2. XIIDRA [Concomitant]
     Active Substance: LIFITEGRAST
  3. Meibo [Concomitant]
  4. artificial tears [Concomitant]

REACTIONS (4)
  - Corneal oedema [Recovered/Resolved]
  - Device dislocation [Recovered/Resolved]
  - Medical device removal [Recovered/Resolved]
  - Eye pain [Recovered/Resolved]

NARRATIVE: CASE EVENT DATE: 20250718
